FAERS Safety Report 5751220-5 (Version None)
Quarter: 2008Q2

REPORT INFORMATION
  Report Type: 
  Country: None (occurrence: None)
  Receive Date: 20080528
  Receipt Date: 20080521
  Transmission Date: 20081010
  Serious: Yes (Hospitalization, Other)
  Sender: FDA-Public Use
  Company Number: GB-BOEHRINGER INGELHEIM GMBH, GERMANY-2008-UK-01168UK

PATIENT
  Sex: Male

DRUGS (8)
  1. SPIRIVA RESPIMAT [Suspect]
     Indication: CHRONIC OBSTRUCTIVE PULMONARY DISEASE
     Dates: start: 20080101
  2. ROSUVASTATIN [Concomitant]
     Dosage: 10
     Route: 048
     Dates: start: 20060901
  3. MYCOPHENOLATE MOFETIL [Concomitant]
     Indication: TRANSPLANT REJECTION
     Dosage: 500 TWICE DAILY
     Route: 048
     Dates: start: 20070501
  4. AMLODIPINE [Concomitant]
     Dosage: TWICE DAILY
     Route: 048
     Dates: start: 20070601
  5. FUROSEMIDE [Concomitant]
     Indication: RENAL FAILURE
     Dosage: 20
     Route: 048
     Dates: start: 20070701
  6. PREDNISOLONE [Concomitant]
     Indication: TRANSPLANT REJECTION
     Dosage: 5
     Route: 048
  7. TACROLIMUS [Concomitant]
     Indication: KIDNEY TRANSPLANT REJECTION
     Dosage: 4 TWICE DAILY
     Route: 048
  8. SYMBICORT [Concomitant]
     Dosage: TWICE DAILY
     Route: 048

REACTIONS (7)
  - CHRONIC OBSTRUCTIVE PULMONARY DISEASE [None]
  - CIRCULATORY COLLAPSE [None]
  - DIALYSIS [None]
  - DIARRHOEA [None]
  - FALL [None]
  - NAUSEA [None]
  - SYNCOPE [None]
